FAERS Safety Report 9094623 (Version 1)
Quarter: 2013Q1

REPORT INFORMATION
  Report Type: Spontaneous
  Country: IE (occurrence: GB)
  Receive Date: 20130219
  Receipt Date: 20130219
  Transmission Date: 20140127
  Serious: Yes (Death)
  Sender: FDA-Public Use
  Company Number: IE-PFIZER INC-2012312625

PATIENT
  Age: 41 Year
  Sex: Female
  Weight: 79 kg

DRUGS (3)
  1. EFEXOR XL [Suspect]
     Indication: DEPRESSION
     Dosage: 75 MG, UNK
     Route: 048
     Dates: start: 20120724
  2. XANAX [Concomitant]
     Dosage: 0.25 MG, 3X/DAY
  3. STILNOCT [Concomitant]
     Dosage: 10 MG, AT NIGHT

REACTIONS (2)
  - Completed suicide [Fatal]
  - Anxiety [Unknown]
